FAERS Safety Report 6302254-3 (Version None)
Quarter: 2009Q3

REPORT INFORMATION
  Report Type: 
  Country: None (occurrence: None)
  Receive Date: 20090810
  Receipt Date: 20071121
  Transmission Date: 20100115
  Serious: Yes (Death, Other)
  Sender: FDA-Public Use
  Company Number: US-ASTRAZENECA-2006UW11915

PATIENT
  Sex: Male
  Weight: 59 kg

DRUGS (10)
  1. SEROQUEL [Suspect]
     Dosage: 50-1600 MG
     Route: 048
     Dates: start: 20030925
  2. HALDOL [Concomitant]
     Dates: start: 19910123
  3. NAVANE [Concomitant]
     Dates: start: 19910123
  4. LANTUS [Concomitant]
     Dosage: 48-100 ML
     Dates: start: 19910123
  5. HYDRO/APAP [Concomitant]
     Dosage: 7.5/750
     Dates: start: 20040606
  6. DIAZEPAM [Concomitant]
     Dates: start: 20040804
  7. METOPROLOL TARTRATE [Concomitant]
     Dates: start: 20050713
  8. ASPIRIN [Concomitant]
     Dates: start: 20060805
  9. BENICAR [Concomitant]
     Dates: start: 20060805
  10. LIPITOR [Concomitant]
     Dates: start: 20060805

REACTIONS (3)
  - DIABETES MELLITUS [None]
  - DIABETIC COMA [None]
  - DRUG TOXICITY [None]
